FAERS Safety Report 7595904-5 (Version None)
Quarter: 2011Q3

REPORT INFORMATION
  Report Type: 
  Country: None (occurrence: None)
  Receive Date: 20110707
  Receipt Date: 20110628
  Transmission Date: 20111222
  Serious: Yes (Other)
  Sender: FDA-Public Use
  Company Number: US-ASTRAZENECA-2011SE39321

PATIENT
  Age: 69 Year
  Sex: Female

DRUGS (3)
  1. CLONAZEPAM [Concomitant]
     Indication: MIGRAINE PROPHYLAXIS
  2. ZOMIG [Suspect]
     Indication: MIGRAINE
     Route: 048
  3. ATENOLOL [Concomitant]
     Indication: MIGRAINE PROPHYLAXIS

REACTIONS (6)
  - PULMONARY EMBOLISM [None]
  - ANKLE FRACTURE [None]
  - PANCREATITIS [None]
  - ABDOMINAL OPERATION [None]
  - FALL [None]
  - LOSS OF CONSCIOUSNESS [None]
